FAERS Safety Report 12682697 (Version 4)
Quarter: 2016Q4

REPORT INFORMATION
  Report Type: Spontaneous
  Country: US (occurrence: US)
  Receive Date: 20160825
  Receipt Date: 20161020
  Transmission Date: 20170207
  Serious: Yes (Hospitalization, Other)
  Sender: FDA-Public Use
  Company Number: US-BAUSCH-BL-2016-020179

PATIENT
  Sex: Female
  Weight: 97.61 kg

DRUGS (7)
  1. LISINOPRIL. [Concomitant]
     Active Substance: LISINOPRIL
     Indication: THYROID DISORDER
  2. LEVOTHYROXINE. [Concomitant]
     Active Substance: LEVOTHYROXINE
     Indication: THYROID DISORDER
  3. LISINOPRIL. [Concomitant]
     Active Substance: LISINOPRIL
     Indication: HYPERTENSION
  4. LISINOPRIL/HCTZ [Concomitant]
     Active Substance: HYDROCHLOROTHIAZIDE\LISINOPRIL
     Indication: HYPERTENSION
     Dosage: 20-12.5 MG
  5. ALENDRONATE [Concomitant]
     Active Substance: ALENDRONATE SODIUM
     Indication: PRODUCT USED FOR UNKNOWN INDICATION
  6. XIFAXAN [Suspect]
     Active Substance: RIFAXIMIN
     Indication: ENCEPHALOPATHY
     Route: 065
     Dates: start: 201604
  7. GENERLAC [Concomitant]
     Active Substance: LACTULOSE
     Indication: LIVER DISORDER
     Dosage: 109/15 ML
     Route: 048

REACTIONS (5)
  - Drug dose omission [Unknown]
  - Cholecystectomy [Recovered/Resolved]
  - Injury [Recovered/Resolved]
  - Abdominal infection [Recovered/Resolved]
  - Amnesia [Recovered/Resolved]

NARRATIVE: CASE EVENT DATE: 2016
